FAERS Safety Report 8541482-3 (Version None)
Quarter: 2012Q3

REPORT INFORMATION
  Report Type: 
  Country: None (occurrence: None)
  Receive Date: 20120726
  Receipt Date: 20110922
  Transmission Date: 20120928
  Serious: No
  Sender: FDA-Public Use
  Company Number: US-ASTRAZENECA-2011SE57141

PATIENT
  Age: 54 Year
  Sex: Female
  Weight: 77.1 kg

DRUGS (8)
  1. ASPIRIN [Concomitant]
     Indication: CARDIAC DISORDER
     Dosage: 2 FULL SIZE DAILY.
     Dates: start: 20110507
  2. HYDROCHLOROTHIZINE [Concomitant]
     Dates: start: 20110507
  3. BYSTOLIC [Concomitant]
     Indication: CARDIAC DISORDER
     Dosage: 5 MILLIGRAMS TWICE DAILY, TOTAL DAILY DOSE: 5 MILLIGRAMS
     Dates: start: 20110507
  4. SEROQUEL [Suspect]
     Indication: BIPOLAR DISORDER
     Route: 048
     Dates: start: 20110515, end: 20110522
  5. SEROQUEL [Suspect]
     Route: 048
     Dates: start: 20110601
  6. SEROQUEL [Suspect]
     Indication: SLEEP DISORDER
     Route: 048
     Dates: start: 20110515, end: 20110522
  7. SEROQUEL [Suspect]
     Route: 048
     Dates: start: 20110601
  8. LISINOPRIL [Concomitant]
     Indication: HYPERTENSION
     Route: 048
     Dates: start: 20110501

REACTIONS (5)
  - ASTHENIA [None]
  - HYPERSOMNIA [None]
  - ARTHRALGIA [None]
  - OFF LABEL USE [None]
  - WRONG TECHNIQUE IN DRUG USAGE PROCESS [None]
